FAERS Safety Report 7365200-X (Version None)
Quarter: 2011Q1

REPORT INFORMATION
  Report Type: 
  Country: None (occurrence: None)
  Receive Date: 20110321
  Receipt Date: 20100914
  Transmission Date: 20110831
  Serious: Yes (Death, Life-Threatening, Disabling, Other)
  Sender: FDA-Public Use
  Company Number: US-BAYER-200836996NA

PATIENT
  Sex: Male
  Weight: 69.5 kg

DRUGS (52)
  1. MAGNEVIST [Suspect]
     Indication: ANGIOGRAM
     Dosage: MAGNEVIST DOSE ILLEGIBLE/60 ML VISIPAQUE
     Dates: start: 20030326, end: 20030326
  2. OMNISCAN [Suspect]
     Indication: ANGIOGRAM
  3. FERROUS SULFATE TAB [Concomitant]
  4. LISINOPRIL [Concomitant]
  5. ASPIRIN [Concomitant]
  6. MAGNEVIST [Suspect]
     Indication: ARTERIOGRAM RENAL
  7. OPTIMARK [Suspect]
     Indication: ANGIOGRAM
     Route: 042
     Dates: start: 20051019, end: 20051019
  8. LORATADINE [Concomitant]
  9. AMLODIPINE [Concomitant]
  10. TAMSULOSIN HCL [Concomitant]
  11. OPTIMARK [Suspect]
     Indication: NUCLEAR MAGNETIC RESONANCE IMAGING
  12. OMNISCAN [Suspect]
     Indication: CAROTID ARTERY OCCLUSION
     Dates: start: 20021224, end: 20021224
  13. EPOGEN [Concomitant]
  14. INDOCIN [Concomitant]
  15. APAP TAB [Concomitant]
  16. COLCHICINE [Concomitant]
  17. ATROVENT [Concomitant]
  18. CYCLOBENZAPRINE HYDROCHLORIDE [Concomitant]
  19. SLEEPINAL [Concomitant]
  20. NIFEREX-PN FORTE [Concomitant]
  21. PERCOCET [Concomitant]
  22. SPIRIVA [Concomitant]
  23. FLOMAX [Concomitant]
  24. FLONASE [Concomitant]
  25. CARVEDILOL [Concomitant]
  26. SEVELAMER [Concomitant]
  27. ZOLPIDEM [Concomitant]
  28. QUININE SULFATE [Concomitant]
  29. MAGNEVIST [Suspect]
     Indication: NUCLEAR MAGNETIC RESONANCE IMAGING
  30. VISIPAQUE [Concomitant]
     Dosage: MAGNEVIST DOSE ILLEGIBLE/60 ML VISIPAQUE
     Dates: start: 20030326, end: 20030326
  31. FUROSEMIDE [Concomitant]
  32. ENALAPRIL [Concomitant]
  33. NITROGLYCERIN [Concomitant]
  34. ADVAIR DISKUS 100/50 [Concomitant]
  35. ALBUTEROL [Concomitant]
  36. XANAX [Concomitant]
  37. HYDRALAZINE [Concomitant]
  38. METOPROLOL SUCCINATE [Concomitant]
  39. TRICOR [Concomitant]
  40. CLONIDINE [Concomitant]
  41. CATAPRES-TTS-2 [Concomitant]
  42. QUININE SULFATE [Concomitant]
  43. ALPRAZOLAM [Concomitant]
  44. NORVASC [Concomitant]
  45. LANOXIN [Concomitant]
  46. DIGOXIN [Concomitant]
  47. RIFAMPIN [Concomitant]
  48. SENSIPAR [Concomitant]
  49. OMNISCAN [Suspect]
     Indication: NUCLEAR MAGNETIC RESONANCE IMAGING
     Route: 042
     Dates: start: 20050829, end: 20050829
  50. RENAGEL [Concomitant]
     Dates: start: 20050324
  51. VIAGRA [Concomitant]
  52. RIFAMPIN [Concomitant]

REACTIONS (19)
  - NEPHROGENIC SYSTEMIC FIBROSIS [None]
  - OEDEMA PERIPHERAL [None]
  - SKIN TIGHTNESS [None]
  - SKIN INDURATION [None]
  - ERYTHEMA [None]
  - JOINT RANGE OF MOTION DECREASED [None]
  - PRURITUS [None]
  - FIBROSIS [None]
  - PAIN IN EXTREMITY [None]
  - EMOTIONAL DISTRESS [None]
  - SKIN ULCER [None]
  - RASH PRURITIC [None]
  - MUSCULOSKELETAL STIFFNESS [None]
  - GENERAL PHYSICAL HEALTH DETERIORATION [None]
  - SCAR [None]
  - SKIN PLAQUE [None]
  - SKIN FIBROSIS [None]
  - MOBILITY DECREASED [None]
  - SKIN HYPERTROPHY [None]
